FAERS Safety Report 10050723 (Version 2)
Quarter: 2014Q2

REPORT INFORMATION
  Report Type: Spontaneous
  Country: US (occurrence: US)
  Receive Date: 20140401
  Receipt Date: 20140401
  Transmission Date: 20141212
  Serious: No
  Sender: FDA-Public Use
  Company Number: US-ASTRAZENECA-2013SE68836

PATIENT
  Age: 47 Year
  Sex: Male

DRUGS (9)
  1. NEXIUM [Suspect]
     Route: 048
  2. CRESTOR [Suspect]
     Route: 048
  3. HYDROCHLOROTHIAZIDE (NON-AZ PRODUCT) [Suspect]
     Route: 065
  4. CELEBREX [Suspect]
     Route: 065
  5. GABAPENTIN [Suspect]
     Route: 065
  6. GLIPIZIDE [Suspect]
     Route: 065
  7. ACCUPRIL [Suspect]
     Route: 065
  8. CIALIS [Suspect]
     Route: 065
  9. LANTUS [Suspect]
     Route: 065

REACTIONS (1)
  - Drug hypersensitivity [Unknown]
